FAERS Safety Report 25528726 (Version 3)
Quarter: 2025Q3

REPORT INFORMATION
  Report Type: Spontaneous
  Country: JP (occurrence: JP)
  Receive Date: 20250708
  Receipt Date: 20250807
  Transmission Date: 20251020
  Serious: Yes (Other)
  Sender: AMGEN
  Company Number: JP-AMGEN-JPNSP2025118614

PATIENT
  Age: 6 Decade
  Sex: Male

DRUGS (5)
  1. BLINCYTO [Suspect]
     Active Substance: BLINATUMOMAB
     Indication: B precursor type acute leukaemia
     Route: 040
     Dates: start: 20250612, end: 20250613
  2. BLINCYTO [Suspect]
     Active Substance: BLINATUMOMAB
     Route: 040
     Dates: start: 20250617, end: 20250623
  3. BLINCYTO [Suspect]
     Active Substance: BLINATUMOMAB
     Route: 040
     Dates: start: 20250624, end: 20250628
  4. BLINCYTO [Suspect]
     Active Substance: BLINATUMOMAB
     Route: 040
     Dates: start: 20250701, end: 20250710
  5. BLINCYTO [Suspect]
     Active Substance: BLINATUMOMAB
     Route: 040
     Dates: start: 20250725

REACTIONS (2)
  - Amylase increased [Recovering/Resolving]
  - Pyrexia [Recovered/Resolved]

NARRATIVE: CASE EVENT DATE: 20250613
